FAERS Safety Report 7927246-X (Version None)
Quarter: 2011Q4

REPORT INFORMATION
  Report Type: 
  Country: None (occurrence: None)
  Receive Date: 20111118
  Receipt Date: 20111109
  Transmission Date: 20120403
  Serious: Yes (Life-Threatening)
  Sender: FDA-Public Use
  Company Number: SK-UCBSA-045274

PATIENT
  Age: 74 Year
  Sex: Female
  Weight: 82 kg

DRUGS (27)
  1. KALDYUM [Concomitant]
     Indication: BLOOD POTASSIUM NORMAL
  2. CAVINTON FORTE [Concomitant]
     Dates: start: 20111108
  3. OMEPRAZOLE [Concomitant]
     Indication: PROPHYLAXIS
  4. CAVINTON FORTE [Concomitant]
     Indication: VASODILATATION
     Dates: start: 20110920, end: 20111108
  5. NEUPRO [Suspect]
     Route: 062
     Dates: start: 20110201, end: 20110207
  6. CARBIDOPA AND LEVODOPA [Suspect]
     Dates: start: 20100930, end: 20101002
  7. CARBIDOPA AND LEVODOPA [Suspect]
     Indication: PARKINSON'S DISEASE
     Dates: start: 20110121
  8. FUROSEMIDE [Concomitant]
     Indication: HYPERKALAEMIA
  9. ALLOPURINOL [Concomitant]
     Indication: HYPERURICAEMIA
  10. RAMIPRIL [Concomitant]
     Indication: HYPERTENSION
  11. LYRICA [Concomitant]
     Indication: NEURALGIA
     Dates: start: 20100923
  12. CARBIDOPA AND LEVODOPA [Suspect]
     Dates: start: 20100923, end: 20100926
  13. CONCOR [Concomitant]
     Indication: MYOCARDIAL ISCHAEMIA
  14. NEBIVOLOL HCL [Concomitant]
     Indication: HYPERTENSION
  15. ALPHA D3 [Concomitant]
     Indication: OSTEOPOROSIS PROPHYLAXIS
     Dates: start: 20110120
  16. CARBIDOPA AND LEVODOPA [Suspect]
     Dates: start: 20100927, end: 20100929
  17. ANOPYRIN [Concomitant]
     Indication: THROMBOSIS PROPHYLAXIS
  18. NOOTROPIL [Concomitant]
     Indication: COGNITIVE DISORDER
  19. SIMVOR [Concomitant]
     Indication: HYPERCHOLESTEROLAEMIA
     Dates: end: 20111001
  20. AMICLOTON [Concomitant]
     Indication: HYPERTENSION
     Dates: end: 20111016
  21. VINPOCETIN COVEX [Concomitant]
     Indication: VASODILATION PROCEDURE
     Dates: start: 20100823, end: 20110920
  22. COSTI [Concomitant]
     Indication: PROPHYLAXIS
     Dates: start: 20100920
  23. NEUPRO [Suspect]
     Indication: PARKINSON'S DISEASE
     Route: 062
     Dates: start: 20110228, end: 20111108
  24. NEUPRO [Suspect]
     Route: 062
     Dates: start: 20110215, end: 20110221
  25. NEUPRO [Suspect]
     Route: 062
     Dates: start: 20110208, end: 20110214
  26. CARBIDOPA AND LEVODOPA [Suspect]
     Dates: start: 20101003, end: 20110120
  27. FUROSEMIDE [Concomitant]
     Indication: POLYURIA

REACTIONS (1)
  - RENAL FAILURE [None]
